FAERS Safety Report 13645954 (Version 1)
Quarter: 2017Q2

REPORT INFORMATION
  Report Type: Spontaneous
  Country: US (occurrence: US)
  Receive Date: 20170612
  Receipt Date: 20170612
  Transmission Date: 20170830
  Serious: Yes (Other)
  Sender: FDA-Public Use
  Company Number: None

PATIENT
  Sex: Female

DRUGS (1)
  1. HUMIRA [Suspect]
     Active Substance: ADALIMUMAB
     Indication: RHEUMATOID ARTHRITIS
     Dosage: 40MG/ML EVERY 14 DAYS SUBCUTANEOUSLY
     Route: 058
     Dates: start: 20140527

REACTIONS (2)
  - Cardiac failure congestive [None]
  - Condition aggravated [None]
